FAERS Safety Report 22613848 (Version 1)
Quarter: 2023Q2

REPORT INFORMATION
  Report Type: Spontaneous
  Country: US (occurrence: US)
  Receive Date: 20230619
  Receipt Date: 20230619
  Transmission Date: 20230721
  Serious: Yes (Other)
  Sender: FDA-Public Use
  Company Number: US-NOVOPROD-1064454

PATIENT
  Age: 59 Year
  Sex: Female

DRUGS (2)
  1. WEGOVY [Suspect]
     Active Substance: SEMAGLUTIDE
     Dosage: 0.5 MG, QW
     Route: 058
     Dates: start: 20230423, end: 20230507
  2. WEGOVY [Suspect]
     Active Substance: SEMAGLUTIDE
     Indication: Obesity
     Dosage: 0.25 MG, QW
     Route: 058
     Dates: start: 20230401, end: 20230422

REACTIONS (3)
  - Chemical burn [Not Recovered/Not Resolved]
  - Wound necrosis [Not Recovered/Not Resolved]
  - Injection site vesicles [Not Recovered/Not Resolved]
